FAERS Safety Report 5612074-0 (Version None)
Quarter: 2008Q1

REPORT INFORMATION
  Report Type: 
  Country: None (occurrence: None)
  Receive Date: 20080204
  Receipt Date: 20080125
  Transmission Date: 20080703
  Serious: Yes (Disabling, Other)
  Sender: FDA-Public Use
  Company Number: PHBS2008IT01358

PATIENT
  Age: 78 Year
  Sex: Female

DRUGS (1)
  1. ZOMETA [Suspect]
     Route: 065
     Dates: start: 20040101, end: 20050101

REACTIONS (2)
  - JAW DISORDER [None]
  - OSTEONECROSIS [None]
